FAERS Safety Report 5749906-1 (Version None)
Quarter: 2008Q2

REPORT INFORMATION
  Report Type: 
  Country: None (occurrence: None)
  Receive Date: 20080527
  Receipt Date: 20080520
  Transmission Date: 20081010
  Serious: Yes (Other)
  Sender: FDA-Public Use
  Company Number: AR-ABBOTT-08P-007-0451035-00

PATIENT
  Sex: Female
  Weight: 58 kg

DRUGS (4)
  1. ZEMPLAR [Suspect]
     Indication: PROPHYLAXIS
     Route: 042
     Dates: start: 20080101
  2. ZEMPLAR [Suspect]
     Indication: HYPERPARATHYROIDISM SECONDARY
  3. IRON [Concomitant]
     Indication: ANAEMIA PROPHYLAXIS
     Route: 042
     Dates: start: 20040101
  4. EPO [Concomitant]
     Indication: ANAEMIA PROPHYLAXIS
     Route: 042
     Dates: start: 20040101

REACTIONS (3)
  - MYALGIA [None]
  - NAUSEA [None]
  - ORTHOSTATIC HYPOTENSION [None]
